FAERS Safety Report 13470871 (Version 1)
Quarter: 2017Q2

REPORT INFORMATION
  Report Type: Spontaneous
  Country: US (occurrence: US)
  Receive Date: 20170424
  Receipt Date: 20170424
  Transmission Date: 20170830
  Serious: No
  Sender: FDA-Public Use
  Company Number: US-ALEXION PHARMACEUTICALS INC.-A201704060

PATIENT
  Age: 16 Year
  Sex: Male

DRUGS (1)
  1. STRENSIQ [Suspect]
     Active Substance: ASFOTASE ALFA
     Indication: HYPOPHOSPHATASIA
     Dosage: UNK (TWO SHOTS), TIW
     Route: 058
     Dates: start: 201512

REACTIONS (3)
  - Blood alkaline phosphatase abnormal [Not Recovered/Not Resolved]
  - Procedural pain [Unknown]
  - Treatment noncompliance [Recovered/Resolved]
